FAERS Safety Report 4856235-7 (Version None)
Quarter: 2005Q4

REPORT INFORMATION
  Report Type: 
  Country: None (occurrence: None)
  Receive Date: 20051215
  Receipt Date: 20051215
  Transmission Date: 20060501
  Serious: No
  Sender: FDA-Public Use
  Company Number: None

PATIENT
  Sex: Female
  Weight: 63.5036 kg

DRUGS (1)
  1. PAXIL [Suspect]
     Indication: DEPRESSION
     Dosage: SMALLEST DOSE POSSIBLE THEN     ONCE A DAY    PO
     Route: 048

REACTIONS (10)
  - CONVULSION [None]
  - DIFFICULTY IN WALKING [None]
  - NERVE INJURY [None]
  - NERVOUS SYSTEM DISORDER [None]
  - NERVOUSNESS [None]
  - PERSONALITY CHANGE [None]
  - PHOTOPSIA [None]
  - SLEEP DISORDER [None]
  - THINKING ABNORMAL [None]
  - TINNITUS [None]
